FAERS Safety Report 21932072 (Version 1)
Quarter: 2023Q1

REPORT INFORMATION
  Report Type: Spontaneous
  Country: FR (occurrence: FR)
  Receive Date: 20230131
  Receipt Date: 20230131
  Transmission Date: 20230418
  Serious: Yes (Life-Threatening)
  Sender: FDA-Public Use
  Company Number: None

PATIENT
  Age: 60 Year
  Sex: Male
  Weight: 64 kg

DRUGS (3)
  1. PAXLOVID [Interacting]
     Active Substance: NIRMATRELVIR\RITONAVIR
     Indication: COVID-19 treatment
     Dosage: [PF-07321332 150 MG]/[RITONAVIR 100 MG], SINGLE
     Route: 048
     Dates: start: 20221230, end: 20221230
  2. TACROLIMUS [Interacting]
     Active Substance: TACROLIMUS
     Indication: Prophylaxis against transplant rejection
     Dosage: 4 MG, SINGLE
     Route: 048
     Dates: start: 20230101, end: 20230101
  3. TACROLIMUS [Interacting]
     Active Substance: TACROLIMUS
     Dosage: 10 MG, SINGLE
     Route: 048
     Dates: start: 20230102, end: 20230102

REACTIONS (2)
  - Drug interaction [Recovering/Resolving]
  - Acute pulmonary oedema [Recovering/Resolving]

NARRATIVE: CASE EVENT DATE: 20230104
